FAERS Safety Report 6416603-9 (Version None)
Quarter: 2009Q4

REPORT INFORMATION
  Report Type: 
  Country: None (occurrence: None)
  Receive Date: 20091023
  Receipt Date: 20091012
  Transmission Date: 20100525
  Serious: Yes (Hospitalization)
  Sender: FDA-Public Use
  Company Number: THYR-1000196

PATIENT
  Age: 52 Year
  Sex: Female
  Weight: 75 kg

DRUGS (4)
  1. THYROGEN [Suspect]
     Indication: THYROID CANCER
     Dosage: 0.9 MG, ONCE, INTRAVENOUS, 0.9 MG, ONCE, INTRAMUSCULAR
     Route: 042
     Dates: start: 20090928, end: 20090928
  2. THYROGEN [Suspect]
     Indication: THYROID CANCER
     Dosage: 0.9 MG, ONCE, INTRAVENOUS, 0.9 MG, ONCE, INTRAMUSCULAR
     Route: 042
     Dates: start: 20090929, end: 20090929
  3. EFFEXOR [Concomitant]
  4. LEXOMIL       (BROMAZEPAM) [Concomitant]

REACTIONS (4)
  - BLOOD PRESSURE SYSTOLIC DECREASED [None]
  - INCORRECT ROUTE OF DRUG ADMINISTRATION [None]
  - NAUSEA [None]
  - PRESYNCOPE [None]
